FAERS Safety Report 17267596 (Version 2)
Quarter: 2020Q1

REPORT INFORMATION
  Report Type: Spontaneous
  Country: US (occurrence: US)
  Receive Date: 20200114
  Receipt Date: 20200213
  Transmission Date: 20200409
  Serious: No
  Sender: FDA-Public Use
  Company Number: US-PFIZER INC-2020015255

PATIENT
  Age: 30 Year
  Sex: Male

DRUGS (2)
  1. SOMATULINE [LANREOTIDE] [Concomitant]
     Active Substance: LANREOTIDE
     Dosage: UNK, CYCLIC (ONCE EVERY 28 DAYS)
  2. SOMAVERT [Suspect]
     Active Substance: PEGVISOMANT
     Indication: ACROMEGALY
     Dosage: 20 MG, DAILY [SOMAVERT 20MG SUBCUTANEOUSLY MONDAY, WEDNESDAY AND FRIDAY]
     Route: 058
     Dates: start: 20200108

REACTIONS (3)
  - Injection site erythema [Recovered/Resolved]
  - Insulin-like growth factor abnormal [Unknown]
  - Off label use [Unknown]

NARRATIVE: CASE EVENT DATE: 20200108
